FAERS Safety Report 5596227-6 (Version None)
Quarter: 2007Q4

REPORT INFORMATION
  Report Type: 
  Country: None (occurrence: None)
  Receive Date: 20071218
  Receipt Date: 20070213
  Transmission Date: 20080405
  Serious: Yes (Hospitalization, Other)
  Sender: FDA-Public Use
  Company Number: 2007013383

PATIENT
  Age: 48 Year
  Sex: Male
  Weight: 72.1 kg

DRUGS (2)
  1. BEXTRA [Suspect]
     Indication: RHEUMATOID ARTHRITIS
     Dosage: 10 MG (10 MG, 1 IN 1 D)
     Dates: start: 20030206, end: 20041101
  2. CELEBREX [Suspect]
     Indication: RHEUMATOID ARTHRITIS
     Dates: start: 20000130, end: 20030206

REACTIONS (1)
  - MYOCARDIAL INFARCTION [None]
